FAERS Safety Report 8915895 (Version 1)
Quarter: 2012Q4

REPORT INFORMATION
  Report Type: 
  Country: US (occurrence: US)
  Receive Date: 20121119
  Receipt Date: 20121119
  Transmission Date: 20130627
  Serious: Yes (Hospitalization)
  Sender: FDA-Public Use
  Company Number: US-ASTRAZENECA-2012SE85202

PATIENT
  Sex: Female

DRUGS (8)
  1. ARIMIDEX [Suspect]
     Route: 048
  2. METOPROLOL [Suspect]
     Route: 065
  3. PRISITIQ [Suspect]
     Indication: DEPRESSION
     Route: 048
     Dates: start: 20120810, end: 20120821
  4. COREG [Concomitant]
  5. DILTIAZEM [Concomitant]
  6. LIPITOR [Concomitant]
  7. LETROZOLE [Concomitant]
  8. VITAMIN D [Concomitant]

REACTIONS (2)
  - Dystonia [Recovered/Resolved]
  - Drug hypersensitivity [Unknown]
